FAERS Safety Report 23568474 (Version 2)
Quarter: 2025Q1

REPORT INFORMATION
  Report Type: Report from Study
  Country: US (occurrence: US)
  Receive Date: 20240227
  Receipt Date: 20250123
  Transmission Date: 20250409
  Serious: Yes (Hospitalization)
  Sender: BOEHRINGER INGELHEIM
  Company Number: US-BoehringerIngelheim-2024-BI-010436

PATIENT
  Age: 77 Year
  Sex: Female

DRUGS (1)
  1. OFEV [Suspect]
     Active Substance: NINTEDANIB
     Indication: Idiopathic pulmonary fibrosis
     Dates: start: 202009

REACTIONS (5)
  - Rib fracture [Unknown]
  - COVID-19 [Unknown]
  - Gastric haemorrhage [Unknown]
  - Cerebrovascular accident [Unknown]
  - Pneumonia [Unknown]
